FAERS Safety Report 26066360 (Version 1)
Quarter: 2025Q4

REPORT INFORMATION
  Report Type: Spontaneous
  Country: US (occurrence: US)
  Receive Date: 20251119
  Receipt Date: 20251119
  Transmission Date: 20260118
  Serious: Yes (Hospitalization, Other)
  Sender: GALPHARM INTERNATIONAL
  Company Number: US-MLMSERVICE-20251031-PI695020-00030-1

PATIENT
  Age: 30 Year
  Sex: Female

DRUGS (2)
  1. IBUPROFEN [Suspect]
     Active Substance: IBUPROFEN
     Indication: Pain
     Dosage: 600 MG, QID PRN
     Route: 048
  2. PEMBROLIZUMAB [Concomitant]
     Active Substance: PEMBROLIZUMAB
     Indication: Metastatic choriocarcinoma
     Dosage: UNKNOWN, UNKNOWN
     Route: 065

REACTIONS (3)
  - Gastritis haemorrhagic [Recovered/Resolved]
  - Mucosal erosion [Recovered/Resolved]
  - Haematemesis [Unknown]
